FAERS Safety Report 5050904-4 (Version None)
Quarter: 2006Q3

REPORT INFORMATION
  Report Type: 
  Country: None (occurrence: None)
  Receive Date: 20060710
  Receipt Date: 20060627
  Transmission Date: 20061208
  Serious: Yes (Hospitalization, Other)
  Sender: FDA-Public Use
  Company Number: 2006-BP-07398RO

PATIENT
  Age: 58 Year
  Sex: Female
  Weight: 54 kg

DRUGS (8)
  1. DIGOXIN [Suspect]
     Dosage: 0.25 MG/DAY (0.25 MG)
  2. HYDROCHLOROTHIAZIDE [Suspect]
     Dosage: 25 MG/DAY (1 IN 1 D)
  3. TELITHROMYCIN (TELITHROMYCIN) [Suspect]
     Indication: BRONCHITIS ACUTE
     Dosage: 800 MG/DAY
  4. BUDESONIDE [Suspect]
     Indication: BRONCHITIS ACUTE
     Dosage: IH
     Route: 055
  5. TERBUTALINE SULFATE [Suspect]
     Indication: BRONCHITIS ACUTE
     Dosage: 10 MG/DAY (10 MG)
  6. PROGESTERONE [Concomitant]
  7. PAROXETINE [Concomitant]
  8. OMEPRAZOLE [Concomitant]

REACTIONS (17)
  - ATRIAL FIBRILLATION [None]
  - BLOOD CREATINE PHOSPHOKINASE MB INCREASED [None]
  - BLOOD CREATININE INCREASED [None]
  - BLOOD POTASSIUM DECREASED [None]
  - BLOOD PRESSURE INCREASED [None]
  - CARDIOACTIVE DRUG LEVEL INCREASED [None]
  - DRUG INTERACTION [None]
  - ELECTROCARDIOGRAM REPOLARISATION ABNORMALITY [None]
  - HEART RATE INCREASED [None]
  - HYPOMAGNESAEMIA [None]
  - HYPONATRAEMIA [None]
  - MALAISE [None]
  - ORTHOSTATIC HYPOTENSION [None]
  - SYNCOPE [None]
  - TACHYARRHYTHMIA [None]
  - THERAPEUTIC AGENT TOXICITY [None]
  - TROPONIN I INCREASED [None]
